FAERS Safety Report 21691913 (Version 4)
Quarter: 2023Q2

REPORT INFORMATION
  Report Type: Other
  Country: US (occurrence: None)
  Receive Date: 20221207
  Receipt Date: 20230620
  Transmission Date: 20230722
  Serious: Yes (Death, Hospitalization)
  Sender: FDA-Public Use
  Company Number: US-ROCHE-3231783

PATIENT

DRUGS (2)
  1. OCRELIZUMAB [Suspect]
     Active Substance: OCRELIZUMAB
     Indication: Multiple sclerosis
     Dosage: CYCLE 1 INCLUDES 2 DOSES OF 300 MG DOSES
     Route: 065
  2. OCRELIZUMAB [Suspect]
     Active Substance: OCRELIZUMAB
     Dosage: CYCLE 2 IS THE FIRST FULL 600 MG DOSE
     Route: 065

REACTIONS (1)
  - COVID-19 [Fatal]
